FAERS Safety Report 21596916 (Version 2)
Quarter: 2022Q4

REPORT INFORMATION
  Report Type: Report from Study
  Country: US (occurrence: US)
  Receive Date: 20221115
  Receipt Date: 20221117
  Transmission Date: 20230112
  Serious: Yes (Hospitalization)
  Sender: FDA-Public Use
  Company Number: US-EXELIXIS-XL18422057847

PATIENT
  Age: 43 Year
  Sex: Female
  Weight: 45.6 kg

DRUGS (12)
  1. CABOZANTINIB [Suspect]
     Active Substance: CABOZANTINIB
     Indication: Leiomyosarcoma
     Dosage: 60 MG, QD
     Route: 048
     Dates: start: 20220411, end: 20220522
  2. NIVOLUMAB [Suspect]
     Active Substance: NIVOLUMAB
     Indication: Leiomyosarcoma
     Dosage: 3 MG/KG (10MG/ML), Q3WEEKS
     Route: 042
     Dates: start: 20220825, end: 20220915
  3. IPILIMUMAB [Suspect]
     Active Substance: IPILIMUMAB
     Indication: Leiomyosarcoma
     Dosage: 1 MG/KG (200MG/40ML), Q3WEEKS
     Route: 042
     Dates: start: 20220825, end: 20220915
  4. SYMBICORT [Concomitant]
     Active Substance: BUDESONIDE\FORMOTEROL FUMARATE DIHYDRATE
  5. COLLAGENASE SANTYL [Concomitant]
     Active Substance: COLLAGENASE CLOSTRIDIUM HISTOLYTICUM
  6. PEPCID [Concomitant]
     Active Substance: FAMOTIDINE
  7. OLAPARIB [Concomitant]
     Active Substance: OLAPARIB
  8. ONDANSETRON [Concomitant]
     Active Substance: ONDANSETRON
  9. MIRALAX [Concomitant]
     Active Substance: POLYETHYLENE GLYCOL 3350
  10. TRAMADOL [Concomitant]
     Active Substance: TRAMADOL
  11. SENNA [Concomitant]
     Active Substance: SENNA LEAF\SENNOSIDES\SENNOSIDES A AND B
  12. PROAIR HFA [Concomitant]
     Active Substance: ALBUTEROL SULFATE

REACTIONS (1)
  - Anal fistula [Unknown]

NARRATIVE: CASE EVENT DATE: 20221101
